FAERS Safety Report 4613897-7 (Version None)
Quarter: 2005Q1

REPORT INFORMATION
  Report Type: 
  Country: None (occurrence: None)
  Receive Date: 20050316
  Receipt Date: 20050309
  Transmission Date: 20050727
  Serious: Yes (Death)
  Sender: FDA-Public Use
  Company Number: SEWYE495111MAR05

PATIENT
  Age: 55 Year
  Sex: Male

DRUGS (4)
  1. EFEXOR DEPOT  XR [Suspect]
     Indication: DEPRESSION
     Dosage: SEE IMAGE
     Route: 048
     Dates: start: 20030101, end: 20031001
  2. EFEXOR DEPOT  XR [Suspect]
     Indication: DEPRESSION
     Dosage: SEE IMAGE
     Route: 048
  3. METFORMIN HCL [Concomitant]
  4. UNSPECIFIED ANTIFUNGAL [Concomitant]

REACTIONS (3)
  - COMPLETED SUICIDE [None]
  - DRUG LEVEL INCREASED [None]
  - SEROTONIN SYNDROME [None]
